FAERS Safety Report 9187069 (Version 1)
Quarter: 2013Q1

REPORT INFORMATION
  Report Type: Other
  Country: GB (occurrence: GB)
  Receive Date: 20130325
  Receipt Date: 20130325
  Transmission Date: 20140127
  Serious: Yes (Other)
  Sender: FDA-Public Use
  Company Number: GB-BRISTOL-MYERS SQUIBB COMPANY-18701813

PATIENT
  Age: 56 Year
  Sex: Male

DRUGS (8)
  1. METFORMIN HCL [Suspect]
     Indication: TYPE 2 DIABETES MELLITUS
     Dosage: 1.DOSE:2 GRAMS IN DIVIDED DOSES?2.2550MG (850MG, 3 IN 1 D).
  2. LIRAGLUTIDE [Suspect]
     Indication: TYPE 2 DIABETES MELLITUS
     Route: 058
  3. INDAPAMIDE [Suspect]
  4. RAMIPRIL [Suspect]
  5. HUMALOG [Concomitant]
     Indication: TYPE 2 DIABETES MELLITUS
     Dosage: 1 DF:16UNITS:BREAKFAST?18UNITS:EVENING?INSULIN LISPRO
     Route: 058
     Dates: start: 1998
  6. INSULATARD [Concomitant]
     Indication: TYPE 2 DIABETES MELLITUS
     Dosage: 1 DF:36UNITS AT BEDTIME?INSULATARD INSULIN/ISOPHANE
     Dates: start: 1998
  7. ASPIRIN [Concomitant]
  8. FELODIPINE [Concomitant]

REACTIONS (3)
  - Renal failure acute [Recovered/Resolved]
  - Hypoglycaemia [Recovered/Resolved]
  - Renal failure acute [None]
